FAERS Safety Report 21994317 (Version 2)
Quarter: 2023Q1

REPORT INFORMATION
  Report Type: Spontaneous
  Country: JP (occurrence: JP)
  Receive Date: 20230215
  Receipt Date: 20230313
  Transmission Date: 20230417
  Serious: Yes (Hospitalization)
  Sender: FDA-Public Use
  Company Number: None

PATIENT
  Age: 73 Year
  Sex: Male

DRUGS (11)
  1. CARBOPLATIN [Suspect]
     Active Substance: CARBOPLATIN
     Indication: Small cell lung cancer
     Dosage: CYCLE,AUC5
     Route: 065
     Dates: start: 2020, end: 2020
  2. PREDNISOLONE [Suspect]
     Active Substance: PREDNISOLONE
     Indication: Immune-mediated enterocolitis
     Dosage: 40 MILLIGRAM, QD
     Route: 048
     Dates: start: 2021
  3. PREDNISOLONE [Suspect]
     Active Substance: PREDNISOLONE
     Dosage: 80 MILLIGRAM, QD,INCREASED TO
     Route: 048
     Dates: start: 2021
  4. CISPLATIN [Suspect]
     Active Substance: CISPLATIN
     Indication: Small cell lung cancer
     Dosage: 80 MILLIGRAM/SQ. METER, CYCLE
     Route: 065
  5. ETOPOSIDE [Suspect]
     Active Substance: ETOPOSIDE
     Indication: Small cell lung cancer
     Dosage: 80 MILLIGRAM/SQ. METER, CYCLE, 1ST CYCLE
     Route: 065
  6. ETOPOSIDE [Suspect]
     Active Substance: ETOPOSIDE
     Dosage: 60 MILLIGRAM/SQ. METER, CYCLE, 2ND CYCLE
     Route: 065
  7. ETOPOSIDE [Suspect]
     Active Substance: ETOPOSIDE
     Dosage: 80 MILLIGRAM/SQ. METER, CYCLE, WITH CARBOPLATIN AND ATEZOLIZUMAB
     Route: 065
     Dates: start: 2020, end: 2020
  8. ATEZOLIZUMAB [Suspect]
     Active Substance: ATEZOLIZUMAB
     Indication: Small cell lung cancer
     Dosage: 1200 MILLIGRAM, CYCLE
     Route: 065
     Dates: start: 2020
  9. ATEZOLIZUMAB [Suspect]
     Active Substance: ATEZOLIZUMAB
     Dosage: 1200 MILLIGRAM, Q3W, FOR MAINTENANCE THERAPY
     Route: 065
     Dates: start: 202012
  10. METHYLPREDNISOLONE [Suspect]
     Active Substance: METHYLPREDNISOLONE
     Indication: Immune-mediated enterocolitis
     Dosage: 500 MILLIGRAM, QD
     Route: 042
     Dates: start: 2021
  11. CEFMETAZOLE [Concomitant]
     Active Substance: CEFMETAZOLE
     Indication: Antibiotic therapy
     Dosage: 4 GRAM, QD,FROM DAY 1 OF HOSPITALIZATION TO DAY 7
     Route: 065

REACTIONS (3)
  - Immune-mediated enterocolitis [Recovering/Resolving]
  - Cytomegalovirus enterocolitis [Recovering/Resolving]
  - Large intestine perforation [Recovering/Resolving]

NARRATIVE: CASE EVENT DATE: 20210101
